FAERS Safety Report 9060015 (Version 1)
Quarter: 2013Q1

REPORT INFORMATION
  Report Type: Spontaneous
  Country: US (occurrence: None)
  Receive Date: 20130207
  Receipt Date: 20130207
  Transmission Date: 20140127
  Serious: Yes (Other)
  Sender: FDA-Public Use
  Company Number: None

PATIENT
  Age: 86 Year
  Sex: Female
  Weight: 56.25 kg

DRUGS (2)
  1. METHYLPREDNISOLONE TABLETS 4MG (21 TABS) [Suspect]
     Indication: CHRONIC OBSTRUCTIVE PULMONARY DISEASE
     Dosage: 1 UNIT OF USE PACK, 1 WEEK DOSAGE PROTOCOL ACCORDING TO INSTRUCTIONS
  2. SPIRIVA [Concomitant]

REACTIONS (2)
  - Palpitations [None]
  - Blood pressure systolic increased [None]
